FAERS Safety Report 17285131 (Version 1)
Quarter: 2020Q1

REPORT INFORMATION
  Report Type: Spontaneous
  Country: FR (occurrence: FR)
  Receive Date: 20200117
  Receipt Date: 20200117
  Transmission Date: 20200409
  Serious: Yes (Hospitalization)
  Sender: FDA-Public Use
  Company Number: FR-009507513-2001FRA004706

PATIENT
  Age: 27 Year
  Sex: Male
  Weight: 51 kg

DRUGS (7)
  1. LOVENOX [Concomitant]
     Active Substance: ENOXAPARIN SODIUM
     Dosage: 1 DOSAGE FORM, QD
     Route: 048
     Dates: start: 20190812
  2. DEXAMETHASONE. [Concomitant]
     Active Substance: DEXAMETHASONE
     Dosage: 40 MILLIGRAM, QD
     Route: 041
     Dates: start: 20190815, end: 20190818
  3. MOVICOL [Concomitant]
     Active Substance: POLYETHYLENE GLYCOL 3350\POTASSIUM CHLORIDE\SODIUM BICARBONATE\SODIUM CHLORIDE
     Dosage: 1 DOSAGE FORM, QD
     Route: 048
     Dates: start: 20190814
  4. STROMECTOL [Suspect]
     Active Substance: IVERMECTIN
     Indication: PROPHYLAXIS
     Dosage: 12 MILLIGRAM, ONCE (TOTAL)
     Route: 048
     Dates: start: 20190813, end: 20190813
  5. LANSOYL [Concomitant]
     Active Substance: MINERAL OIL
     Dosage: 1 DOSAGE FORM, QD
     Route: 048
     Dates: start: 20190815
  6. EDUCTYL [Concomitant]
     Active Substance: POTASSIUM BITARTRATE\SODIUM BICARBONATE
     Dosage: 1 DOSAGE FORM, QD, FORMULATION: SUPPOSITORY EFFERVESCENT
     Route: 054
     Dates: start: 20190813
  7. TEGELINE [Suspect]
     Active Substance: HUMAN IMMUNOGLOBULIN G
     Indication: IMMUNOGLOBULIN THERAPY
     Dosage: 20 GRAM, ONCE
     Route: 041
     Dates: start: 20190813, end: 20190817

REACTIONS (1)
  - Hepatocellular injury [Recovered/Resolved]

NARRATIVE: CASE EVENT DATE: 20190817
